FAERS Safety Report 21054242 (Version 1)
Quarter: 2022Q3

REPORT INFORMATION
  Report Type: Spontaneous
  Country: US (occurrence: US)
  Receive Date: 20220707
  Receipt Date: 20220707
  Transmission Date: 20221027
  Serious: Yes (Other)
  Sender: FDA-Public Use
  Company Number: US-BRISTOL-MYERS SQUIBB COMPANY-2022-066167

PATIENT
  Age: 57 Year
  Sex: Female

DRUGS (12)
  1. REVLIMID [Suspect]
     Active Substance: LENALIDOMIDE
     Indication: Myelodysplastic syndrome
     Route: 048
     Dates: start: 20190327
  2. VITAMIN E [Concomitant]
     Active Substance: .ALPHA.-TOCOPHEROL
     Indication: Product used for unknown indication
     Dosage: 10000 UNIT
     Route: 065
  3. ECHINACEA [ECHINACEA ANGUSTIFOLIA ROOT] [Concomitant]
     Indication: Product used for unknown indication
     Route: 065
  4. GINKGO BILOBA [GINKGO BILOBA LEAF EXTRACT] [Concomitant]
     Indication: Product used for unknown indication
     Route: 065
  5. MACA ROOT [Concomitant]
     Indication: Product used for unknown indication
     Route: 065
  6. FISH OIL [Concomitant]
     Active Substance: FISH OIL
     Indication: Product used for unknown indication
     Route: 065
  7. RETINOL [Concomitant]
     Active Substance: RETINOL
     Indication: Product used for unknown indication
     Dosage: 10000 UNIT
     Route: 065
  8. ZINCO [ZINC] [Concomitant]
     Indication: Product used for unknown indication
     Dosage: 10000 UNIT
     Route: 065
  9. CURCUMIN [Concomitant]
     Active Substance: CURCUMIN
     Indication: Product used for unknown indication
     Dosage: CURCUMIN 95
     Route: 065
  10. VITAMIN D3 [Concomitant]
     Active Substance: CHOLECALCIFEROL
     Indication: Product used for unknown indication
     Route: 065
  11. VITAMIN D3 [Concomitant]
     Active Substance: CHOLECALCIFEROL
     Route: 065
  12. CHLORELLA [CHLORELLA PYRENOIDOSA] [Concomitant]
     Indication: Product used for unknown indication
     Route: 065

REACTIONS (1)
  - Blood disorder [Not Recovered/Not Resolved]
